FAERS Safety Report 13907770 (Version 1)
Quarter: 2017Q3

REPORT INFORMATION
  Report Type: Spontaneous
  Country: US (occurrence: US)
  Receive Date: 20170825
  Receipt Date: 20170825
  Transmission Date: 20171127
  Serious: No
  Sender: FDA-Public Use
  Company Number: US-ROCHE-1117026

PATIENT
  Sex: Male

DRUGS (1)
  1. NUTROPIN [Suspect]
     Active Substance: SOMATROPIN
     Indication: DWARFISM
     Route: 065

REACTIONS (9)
  - Disturbance in attention [Unknown]
  - Arthralgia [Unknown]
  - Irritability [Unknown]
  - Poor quality sleep [Unknown]
  - Exercise tolerance decreased [Unknown]
  - Asthenia [Unknown]
  - Fatigue [Unknown]
  - Weight increased [Unknown]
  - Memory impairment [Unknown]
